FAERS Safety Report 13878949 (Version 1)
Quarter: 2017Q3

REPORT INFORMATION
  Report Type: Spontaneous
  Country: US (occurrence: US)
  Receive Date: 20170817
  Receipt Date: 20170817
  Transmission Date: 20171127
  Serious: Yes (Hospitalization)
  Sender: FDA-Public Use
  Company Number: US-VERTEX PHARMACEUTICALS-2017-004436

PATIENT
  Sex: Female

DRUGS (12)
  1. NEXIUM [Concomitant]
     Active Substance: ESOMEPRAZOLE MAGNESIUM
  2. NOVOLOG [Concomitant]
     Active Substance: INSULIN ASPART
  3. CAYSTON [Concomitant]
     Active Substance: AZTREONAM
  4. VITAMIN D [Concomitant]
     Active Substance: CHOLECALCIFEROL
  5. TOBI [Concomitant]
     Active Substance: TOBRAMYCIN
  6. PULMOZYME [Concomitant]
     Active Substance: DORNASE ALFA
  7. ALBUTEROL. [Concomitant]
     Active Substance: ALBUTEROL
  8. ORKAMBI [Suspect]
     Active Substance: IVACAFTOR\LUMACAFTOR
     Indication: CYSTIC FIBROSIS
     Dosage: UNK, BID
     Route: 048
     Dates: start: 201611
  9. CREON [Concomitant]
     Active Substance: PANCRELIPASE AMYLASE\PANCRELIPASE LIPASE\PANCRELIPASE PROTEASE
  10. AZITHROMYCIN ANHYDROUS. [Concomitant]
     Active Substance: AZITHROMYCIN ANHYDROUS
  11. ADVAIR HFA [Concomitant]
     Active Substance: FLUTICASONE PROPIONATE\SALMETEROL XINAFOATE
  12. LANTUS [Concomitant]
     Active Substance: INSULIN GLARGINE

REACTIONS (1)
  - Infection [Unknown]
